FAERS Safety Report 25093536 (Version 2)
Quarter: 2025Q2

REPORT INFORMATION
  Report Type: Spontaneous
  Country: US (occurrence: US)
  Receive Date: 20250319
  Receipt Date: 20250602
  Transmission Date: 20250717
  Serious: No
  Sender: LUPIN
  Company Number: US-LUPIN PHARMACEUTICALS INC.-2025-00898

PATIENT
  Age: 70 Year
  Weight: 63.49 kg

DRUGS (7)
  1. ALBUTEROL SULFATE [Suspect]
     Active Substance: ALBUTEROL SULFATE
     Indication: Asthma
  2. ATORVASTATIN [Concomitant]
     Active Substance: ATORVASTATIN
     Indication: Product used for unknown indication
     Route: 065
  3. CHLORTHALIDONE [Concomitant]
     Active Substance: CHLORTHALIDONE
     Indication: Product used for unknown indication
     Route: 065
  4. DICLOFENAC SODIUM [Concomitant]
     Active Substance: DICLOFENAC SODIUM
     Indication: Product used for unknown indication
     Dosage: 75 MILLIGRAM, BID (TWICE A DAY)
     Route: 065
  5. PREDNISOLONE [Concomitant]
     Active Substance: PREDNISOLONE
     Indication: Product used for unknown indication
     Dosage: 5 MILLIGRAM, BID (TWICE A DAY)
     Route: 065
  6. METHADONE [Concomitant]
     Active Substance: METHADONE HYDROCHLORIDE
     Indication: Product used for unknown indication
     Dosage: 20 MILLIGRAM, QD (PER DAY)
     Route: 065
  7. HYDROCODONE [Concomitant]
     Active Substance: HYDROCODONE
     Indication: Product used for unknown indication
     Dosage: 2 DOSAGE FORM, BID (2 PILLS TWICE A DAY)
     Route: 065

REACTIONS (3)
  - Dyspnoea [Unknown]
  - Device delivery system issue [Unknown]
  - Drug dose omission by device [Unknown]
